FAERS Safety Report 6212106-5 (Version None)
Quarter: 2009Q2

REPORT INFORMATION
  Report Type: 
  Country: None (occurrence: None)
  Receive Date: 20090602
  Receipt Date: 20090601
  Transmission Date: 20091009
  Serious: Yes (Other)
  Sender: FDA-Public Use
  Company Number: US-PFIZER INC-2009189391

PATIENT
  Sex: Male

DRUGS (3)
  1. DILANTIN-125 [Suspect]
     Indication: PETIT MAL EPILEPSY
     Dosage: UNK MG, UNK
     Dates: start: 19900101
  2. PHENYTOIN AND PHENYTOIN SODIUM [Suspect]
     Dosage: 100 MG, UNK
  3. VITAMINS [Concomitant]
     Dosage: UNK

REACTIONS (2)
  - COLOUR BLINDNESS [None]
  - CONVULSION [None]
